FAERS Safety Report 10949876 (Version 1)
Quarter: 2015Q1

REPORT INFORMATION
  Report Type: Spontaneous
  Country: US (occurrence: None)
  Receive Date: 20150323
  Receipt Date: 20150323
  Transmission Date: 20150721
  Serious: Yes (Hospitalization, Disabling)
  Sender: FDA-Public Use
  Company Number: None

PATIENT
  Age: 27 Year
  Sex: Female
  Weight: 68.04 kg

DRUGS (34)
  1. ZEAXANTHIN [Concomitant]
     Active Substance: ZEAXANTHIN
  2. LUTEIN [Concomitant]
     Active Substance: LUTEIN
  3. ADVAIR HFA [Concomitant]
     Active Substance: FLUTICASONE PROPIONATE\SALMETEROL XINAFOATE
  4. VENTOLIN [Concomitant]
     Active Substance: ALBUTEROL SULFATE
  5. NEXIUM [Concomitant]
     Active Substance: ESOMEPRAZOLE MAGNESIUM
  6. POTASSIUM [Concomitant]
     Active Substance: POTASSIUM
  7. RIBOFLAVIN [Concomitant]
     Active Substance: RIBOFLAVIN
  8. TREXIMET [Concomitant]
     Active Substance: NAPROXEN SODIUM\SUMATRIPTAN SUCCINATE
  9. PULMICORT TURBUHALER [Concomitant]
     Active Substance: BUDESONIDE
  10. PROCHLORPERAZINE. [Concomitant]
     Active Substance: PROCHLORPERAZINE
  11. FOLIC ACID. [Concomitant]
     Active Substance: FOLIC ACID
  12. VITAMIN D3 [Concomitant]
     Active Substance: CHOLECALCIFEROL
  13. PROBIOTICS [Concomitant]
     Active Substance: PROBIOTICS NOS
  14. UBIQUINOL [Concomitant]
  15. SUCRALFATE. [Concomitant]
     Active Substance: SUCRALFATE
  16. PROMETHAZINE [Concomitant]
     Active Substance: PROMETHAZINE\PROMETHAZINE HYDROCHLORIDE
  17. HYDROCORTISONE. [Concomitant]
     Active Substance: HYDROCORTISONE
  18. VITAMIN C [Concomitant]
     Active Substance: ASCORBIC ACID
  19. TOPAMAX [Concomitant]
     Active Substance: TOPIRAMATE
  20. MONTELUKAST [Concomitant]
     Active Substance: MONTELUKAST SODIUM
  21. LUNESTA [Concomitant]
     Active Substance: ESZOPICLONE
  22. MAGNESIUM [Concomitant]
     Active Substance: MAGNESIUM
  23. OMEGA-3 FATTY ACIDS [Concomitant]
     Active Substance: OMEGA-3 FATTY ACIDS
  24. BIOTIN [Concomitant]
     Active Substance: BIOTIN
  25. LEVAQUIN [Suspect]
     Active Substance: LEVOFLOXACIN
     Indication: SINUSITIS
     Route: 048
     Dates: start: 20090209, end: 20090218
  26. ONDANSETRON [Concomitant]
     Active Substance: ONDANSETRON
  27. VITAMIN E [Concomitant]
     Active Substance: .ALPHA.-TOCOPHEROL
  28. ENTERRA GASTRIC NEUROSTIMULATOR [Concomitant]
  29. CALCIUM [Concomitant]
     Active Substance: CALCIUM
  30. RESVERATROL [Concomitant]
     Active Substance: RESVERATROL
  31. B100 (VITAMIN B COMPLEX) [Concomitant]
  32. CETIRIZINE [Concomitant]
     Active Substance: CETIRIZINE HYDROCHLORIDE
  33. LEVOCARNITINE. [Concomitant]
     Active Substance: LEVOCARNITINE
  34. MULTIVITAMIN [Concomitant]
     Active Substance: VITAMINS

REACTIONS (3)
  - Impaired work ability [None]
  - Mitochondrial myopathy [None]
  - Economic problem [None]

NARRATIVE: CASE EVENT DATE: 20090301
